FAERS Safety Report 10335544 (Version 1)
Quarter: 2014Q3

REPORT INFORMATION
  Report Type: Spontaneous
  Country: US (occurrence: None)
  Receive Date: 20140722
  Receipt Date: 20140722
  Transmission Date: 20150326
  Serious: Yes (Disabling)
  Sender: FDA-Public Use
  Company Number: None

PATIENT
  Age: 58 Year
  Sex: Female
  Weight: 83.46 kg

DRUGS (1)
  1. BOTOX [Suspect]
     Active Substance: ONABOTULINUMTOXINA
     Indication: MIGRAINE
     Dates: start: 20140708, end: 20140708

REACTIONS (6)
  - Fatigue [None]
  - Asthenia [None]
  - Neck pain [None]
  - Vision blurred [None]
  - Diplopia [None]
  - Dysphagia [None]

NARRATIVE: CASE EVENT DATE: 20140715
